FAERS Safety Report 4376885-4 (Version None)
Quarter: 2004Q2

REPORT INFORMATION
  Report Type: 
  Country: None (occurrence: None)
  Receive Date: 20040608
  Receipt Date: 20030512
  Transmission Date: 20050107
  Serious: Yes (Hospitalization)
  Sender: FDA-Public Use
  Company Number: 200311627BCC

PATIENT
  Age: 41 Year
  Sex: Female
  Weight: 56.6996 kg

DRUGS (2)
  1. ALEVE [Suspect]
     Dosage: ORAL
     Route: 048
  2. ORTHO-NOVUM [Concomitant]

REACTIONS (4)
  - ANAPHYLACTIC SHOCK [None]
  - OROPHARYNGEAL SWELLING [None]
  - PARAESTHESIA [None]
  - URTICARIA [None]
